FAERS Safety Report 14566345 (Version 3)
Quarter: 2018Q1

REPORT INFORMATION
  Report Type: Spontaneous
  Country: US (occurrence: US)
  Receive Date: 20180223
  Receipt Date: 20180323
  Transmission Date: 20180509
  Serious: No
  Sender: FDA-Public Use
  Company Number: US-PFIZER INC-2017503753

PATIENT
  Age: 61 Year
  Sex: Female

DRUGS (1)
  1. GENOTROPIN MQ [Suspect]
     Active Substance: SOMATROPIN
     Indication: GROWTH HORMONE DEFICIENCY
     Dosage: 0.25 ML, UNK (1MG/0.25ML SUBQ SYRINGE)
     Route: 058
     Dates: start: 201007

REACTIONS (2)
  - Feeling abnormal [Unknown]
  - Drug dose omission [Unknown]
